FAERS Safety Report 11933942 (Version 3)
Quarter: 2016Q1

REPORT INFORMATION
  Report Type: Report from Study
  Country: US (occurrence: US)
  Receive Date: 20160121
  Receipt Date: 20160127
  Transmission Date: 20160526
  Serious: Yes (Life-Threatening, Hospitalization)
  Sender: FDA-Public Use
  Company Number: US-JNJFOC-20160109112

PATIENT
  Age: 44 Year
  Sex: Female
  Weight: 47 kg

DRUGS (2)
  1. TYLENOL PM [Suspect]
     Active Substance: ACETAMINOPHEN\DIPHENHYDRAMINE
     Indication: PRODUCT USED FOR UNKNOWN INDICATION
     Route: 048
     Dates: start: 201502
  2. CLONAZEPAM. [Suspect]
     Active Substance: CLONAZEPAM
     Indication: PRODUCT USED FOR UNKNOWN INDICATION
     Dosage: 35-45 TABLETS
     Route: 048
     Dates: start: 201502

REACTIONS (9)
  - Transaminases increased [Unknown]
  - Lethargy [Unknown]
  - Hepatic necrosis [Unknown]
  - Confusional state [Unknown]
  - Hypoglycaemia [Unknown]
  - Intentional overdose [Unknown]
  - Blood bilirubin increased [Unknown]
  - Suicide attempt [Unknown]
  - Prothrombin time prolonged [Unknown]

NARRATIVE: CASE EVENT DATE: 201502
